FAERS Safety Report 9048482 (Version 1)
Quarter: 2013Q1

REPORT INFORMATION
  Report Type: Spontaneous
  Country: US (occurrence: US)
  Receive Date: 20130204
  Receipt Date: 20130204
  Transmission Date: 20140127
  Serious: No
  Sender: FDA-Public Use
  Company Number: US-AMGEN-USASP2013001143

PATIENT
  Sex: Female
  Weight: 47.62 kg

DRUGS (4)
  1. ENBREL [Suspect]
     Indication: RHEUMATOID ARTHRITIS
     Dosage: UNK
  2. ENBREL [Suspect]
     Indication: COLITIS
  3. HUMIRA [Concomitant]
     Indication: RHEUMATOID ARTHRITIS
     Dosage: UNK
  4. HUMIRA [Concomitant]
     Indication: COLITIS

REACTIONS (2)
  - Joint lock [Unknown]
  - Therapeutic response decreased [Unknown]
